FAERS Safety Report 9190744 (Version 1)
Quarter: 2013Q1

REPORT INFORMATION
  Report Type: Spontaneous
  Country: GB (occurrence: None)
  Receive Date: 20130322
  Receipt Date: 20130322
  Transmission Date: 20140127
  Serious: Yes (Disabling)
  Sender: FDA-Public Use
  Company Number: THQ2013A02064

PATIENT
  Age: 78 Year
  Sex: Male

DRUGS (3)
  1. LANSOPRAZOLE  (LANSOPRAZOLE) [Suspect]
     Indication: GASTROINTESTINAL DISORDER
     Route: 048
     Dates: start: 20130207
  2. IBUPROFEN  (IBUPROFEN) [Suspect]
     Indication: PAIN
     Route: 048
     Dates: start: 20130206
  3. ELIQUIS [Suspect]
     Indication: DEEP VEIN THROMBOSIS
     Route: 048
     Dates: start: 20130206, end: 20130216

REACTIONS (3)
  - Jaundice [None]
  - Wound haematoma [None]
  - Wound decomposition [None]
